FAERS Safety Report 17694551 (Version 2)
Quarter: 2020Q2

REPORT INFORMATION
  Report Type: Report from Study
  Country: GB (occurrence: GB)
  Receive Date: 20200422
  Receipt Date: 20200506
  Transmission Date: 20200714
  Serious: Yes (Hospitalization, Other)
  Sender: FDA-Public Use
  Company Number: NVSC2020GB025838

PATIENT
  Sex: Male

DRUGS (2)
  1. COSENTYX [Suspect]
     Active Substance: SECUKINUMAB
     Indication: PSORIATIC ARTHROPATHY
     Dosage: 300 MG, QMO
     Route: 058
     Dates: start: 20170908, end: 201910
  2. COSENTYX [Suspect]
     Active Substance: SECUKINUMAB
     Dosage: 200 MG, QMO
     Route: 058
     Dates: end: 20200103

REACTIONS (7)
  - Pneumonia [Unknown]
  - Arthropathy [Not Recovered/Not Resolved]
  - Oral pain [Unknown]
  - Psoriatic arthropathy [Unknown]
  - Gingival pain [Unknown]
  - General physical health deterioration [Unknown]
  - Glossodynia [Unknown]

NARRATIVE: CASE EVENT DATE: 201910
